FAERS Safety Report 13235245 (Version 2)
Quarter: 2018Q1

REPORT INFORMATION
  Report Type: Report from Study
  Country: None (occurrence: US)
  Receive Date: 20170215
  Receipt Date: 20180212
  Transmission Date: 20180508
  Serious: No
  Sender: FDA-Public Use
  Company Number: US-AMAG PHARMACEUTICALS, INC.-AMAG201700178

PATIENT

DRUGS (2)
  1. MAKENA [Suspect]
     Active Substance: HYDROXYPROGESTERONE CAPROATE
     Indication: PRODUCT USED FOR UNKNOWN INDICATION
     Dosage: UNK
     Route: 065
     Dates: start: 20161116
  2. ANTIBIOTICS [Concomitant]
     Active Substance: UNSPECIFIED INGREDIENT
     Indication: INFECTION
     Dosage: UNK
     Route: 065
     Dates: start: 20170113

REACTIONS (1)
  - Infection [Unknown]
